FAERS Safety Report 4367435-7 (Version None)
Quarter: 2004Q2

REPORT INFORMATION
  Report Type: 
  Country: None (occurrence: None)
  Receive Date: 20040528
  Receipt Date: 20040528
  Transmission Date: 20050107
  Serious: No
  Sender: FDA-Public Use
  Company Number: None

PATIENT
  Age: 71 Year
  Sex: Female
  Weight: 40 kg

DRUGS (7)
  1. TEQUIN [Suspect]
     Indication: PNEUMONIA
     Dosage: 400 MG IVPB Q 24 HRS
     Route: 042
     Dates: start: 20040503, end: 20040504
  2. ASPIRIN [Concomitant]
  3. PROTONIX [Concomitant]
  4. LIPITOR [Concomitant]
  5. PREDNISONE [Concomitant]
  6. LASIX [Concomitant]
  7. FOLIC ACID [Concomitant]

REACTIONS (1)
  - HYPOGLYCAEMIA [None]
